FAERS Safety Report 5852137-8 (Version None)
Quarter: 2008Q3

REPORT INFORMATION
  Report Type: 
  Country: None (occurrence: None)
  Receive Date: 20080819
  Receipt Date: 20080819
  Transmission Date: 20090109
  Serious: Yes (Hospitalization)
  Sender: FDA-Public Use
  Company Number: None

PATIENT
  Age: 68 Year
  Sex: Female
  Weight: 108 kg

DRUGS (9)
  1. WARFARIN SODIUM [Suspect]
     Indication: PULMONARY EMBOLISM
     Dosage: 8 MG DAILY PO
     Route: 048
     Dates: start: 20071101
  2. SYMLIN [Concomitant]
  3. NOVOLOG [Concomitant]
  4. LANTUS [Concomitant]
  5. AMARYL [Concomitant]
  6. SYNTHROID [Concomitant]
  7. POTASSIUM CHLORIDE [Concomitant]
  8. METOPROLOL TARTRATE [Concomitant]
  9. WELCHOL [Concomitant]

REACTIONS (2)
  - HEADACHE [None]
  - SUBARACHNOID HAEMORRHAGE [None]
